FAERS Safety Report 4454031-6 (Version None)
Quarter: 2004Q3

REPORT INFORMATION
  Report Type: 
  Country: None (occurrence: None)
  Receive Date: 20040826
  Receipt Date: 20040525
  Transmission Date: 20050211
  Serious: No
  Sender: FDA-Public Use
  Company Number: WAES 0402USA01702

PATIENT
  Age: 61 Year
  Sex: Male
  Weight: 115.6672 kg

DRUGS (4)
  1. ZETIA [Suspect]
     Dosage: 10 MG, DAILY, PO
     Route: 048
  2. ALTACE [Concomitant]
  3. LIPITOR [Concomitant]
  4. ASPIRIN [Concomitant]

REACTIONS (3)
  - DIPLOPIA [None]
  - PHOTOPSIA [None]
  - VISUAL ACUITY REDUCED [None]
